FAERS Safety Report 9786365 (Version 2)
Quarter: 2013Q4

REPORT INFORMATION
  Report Type: Spontaneous
  Country: CA (occurrence: CA)
  Receive Date: 20131227
  Receipt Date: 20131227
  Transmission Date: 20140711
  Serious: Yes (Death, Hospitalization)
  Sender: FDA-Public Use
  Company Number: CA-BAXTER-2013BAX041953

PATIENT
  Age: 89 Year
  Sex: Male

DRUGS (1)
  1. DIANEAL PD4 SOLUTION WITH 1.5% DEXTROSE AND 2.5 MEQ/L CALCIUM [Suspect]
     Indication: RENAL FAILURE
     Route: 033
     Dates: start: 2009, end: 20131017

REACTIONS (4)
  - Death [Fatal]
  - Hip fracture [Not Recovered/Not Resolved]
  - Blood pressure decreased [Not Recovered/Not Resolved]
  - Hypokinesia [Unknown]
